FAERS Safety Report 8521697-0 (Version None)
Quarter: 2012Q3

REPORT INFORMATION
  Report Type: 
  Country: None (occurrence: None)
  Receive Date: 20120719
  Receipt Date: 20120717
  Transmission Date: 20120928
  Serious: Yes (Death, Hospitalization, Other)
  Sender: FDA-Public Use
  Company Number: PHEH2005US03757

PATIENT
  Sex: Female

DRUGS (36)
  1. AREDIA [Suspect]
     Indication: METASTASES TO BONE
     Dosage: 90 MG, QMO
     Route: 042
     Dates: start: 20000609, end: 20020214
  2. RANITIDINE [Concomitant]
     Indication: ANTACID THERAPY
  3. AROMASIN [Concomitant]
     Indication: BREAST CANCER METASTATIC
     Dates: start: 20031112, end: 20040331
  4. FASLODEX [Concomitant]
  5. AREDIA [Suspect]
     Dosage: 90 MG, QMO
     Route: 042
     Dates: start: 20031219, end: 20040514
  6. TAMOXIFEN CITRATE [Concomitant]
     Dosage: 10 MG, BID
     Route: 048
     Dates: start: 20000310, end: 20020110
  7. RITALIN [Concomitant]
     Dosage: 40 MG, UNK
  8. ZYBAN [Concomitant]
     Indication: SMOKING CESSATION THERAPY
     Dates: start: 20040618
  9. TAMOXIFEN CITRATE [Concomitant]
     Dosage: 20 MG, QD
     Route: 048
     Dates: start: 20040331, end: 20051019
  10. PROTONIX [Concomitant]
  11. PAXIL [Concomitant]
     Indication: DEPRESSION
     Dosage: 10 MG, QD
     Route: 048
     Dates: start: 20010712
  12. FEMARA [Concomitant]
     Indication: BREAST CANCER METASTATIC
     Dosage: 2.5 MG, QD
     Dates: start: 20020523, end: 20030901
  13. RITALIN [Concomitant]
     Indication: FATIGUE
     Dosage: 20 MG, QD
     Route: 048
  14. REGLAN [Concomitant]
  15. ZOMETA [Suspect]
     Indication: BREAST CANCER METASTATIC
     Dosage: 4 MG, QMO
     Route: 042
     Dates: start: 20020322, end: 20030912
  16. VALIUM [Concomitant]
     Indication: INSOMNIA
     Dosage: 2 MG, 1-2 TABS QHS
     Dates: start: 20000808
  17. FENTANYL [Concomitant]
     Dosage: 200 MG, UNK
     Route: 062
  18. VALIUM [Concomitant]
     Dosage: 10 MG, UNK
  19. PROZAC [Concomitant]
     Indication: DEPRESSION
     Dosage: 40 MG, UNK
  20. PROZAC [Concomitant]
     Dosage: 20 MG, UNK
  21. NAPROXEN [Concomitant]
     Indication: PAIN
     Dosage: 500 MG, BID
     Route: 048
     Dates: start: 20030617
  22. NEXIUM [Concomitant]
  23. VALIUM [Concomitant]
     Dosage: 5 MG, UNK
  24. VALIUM [Concomitant]
     Dosage: 7.5 MG,  2 TABS QHS PRN
     Route: 048
  25. ATIVAN [Concomitant]
     Indication: INSOMNIA
     Dosage: 1 MG, UNK
     Dates: start: 20000704, end: 20000704
  26. PAXIL [Concomitant]
     Dosage: 20 MG, QD
  27. RITALIN [Concomitant]
     Dosage: 60 MG, QD
  28. IRON [Concomitant]
     Route: 048
  29. SPIRONOLACTONE [Concomitant]
     Indication: ASCITES
     Dosage: 100 MG, UNK
     Dates: start: 20000407, end: 20001027
  30. PRILOSEC [Concomitant]
     Indication: ULCER
     Dates: start: 20010220
  31. ZOLOFT [Concomitant]
     Dosage: 50 MG, QD IN AM
  32. LASIX [Concomitant]
     Indication: OEDEMA PERIPHERAL
     Dosage: 20 MG, PRN
     Route: 048
  33. AMBIEN [Concomitant]
     Indication: INSOMNIA
     Dosage: 10 MG, UNK
     Dates: start: 20021011
  34. TEMAZEPAM [Concomitant]
     Indication: INSOMNIA
     Dosage: 15 MG, QHS
     Route: 048
     Dates: start: 20000310, end: 20000915
  35. RITALIN [Concomitant]
     Dosage: 80 MG, UNK
  36. VICODIN [Concomitant]
     Indication: PAIN
     Dates: start: 20000302

REACTIONS (56)
  - OSTEONECROSIS OF JAW [None]
  - PRIMARY SEQUESTRUM [None]
  - HYPERSOMNIA [None]
  - SALIVARY HYPERSECRETION [None]
  - PRURITUS [None]
  - MALIGNANT ASCITES [None]
  - MALNUTRITION [None]
  - WEIGHT DECREASED [None]
  - DENTAL FISTULA [None]
  - MUSCLE SPASMS [None]
  - INSOMNIA [None]
  - ANAEMIA [None]
  - CHEST PAIN [None]
  - OEDEMA PERIPHERAL [None]
  - METASTASES TO BONE [None]
  - HYPOKALAEMIA [None]
  - DEPRESSION [None]
  - PERIODONTAL DISEASE [None]
  - BONE PAIN [None]
  - FEELING ABNORMAL [None]
  - PALLOR [None]
  - GAIT DISTURBANCE [None]
  - CULTURE POSITIVE [None]
  - FATIGUE [None]
  - ASCITES [None]
  - HAEMATEMESIS [None]
  - AGEUSIA [None]
  - OSTEITIS [None]
  - X-RAY ABNORMAL [None]
  - TUMOUR MARKER INCREASED [None]
  - TOOTHACHE [None]
  - OESOPHAGITIS [None]
  - CONSTIPATION [None]
  - DYSPHAGIA [None]
  - GENERAL PHYSICAL HEALTH DETERIORATION [None]
  - PURULENT DISCHARGE [None]
  - BONE SCAN ABNORMAL [None]
  - INFLUENZA LIKE ILLNESS [None]
  - INCREASED UPPER AIRWAY SECRETION [None]
  - JAW CYST [None]
  - DEPRESSED LEVEL OF CONSCIOUSNESS [None]
  - BREAST CANCER METASTATIC [None]
  - ASTHENIA [None]
  - GASTRITIS [None]
  - HYPOALBUMINAEMIA [None]
  - BONE DISORDER [None]
  - ORAL DISORDER [None]
  - IMPAIRED HEALING [None]
  - MASTICATION DISORDER [None]
  - PLEURAL EFFUSION [None]
  - TRANSIENT ISCHAEMIC ATTACK [None]
  - TOOTH DISORDER [None]
  - FAECES DISCOLOURED [None]
  - PAIN [None]
  - HYDRONEPHROSIS [None]
  - ATROPHY [None]
